FAERS Safety Report 4582551-2 (Version None)
Quarter: 2005Q1

REPORT INFORMATION
  Report Type: 
  Country: None (occurrence: None)
  Receive Date: 20050211
  Receipt Date: 20050211
  Transmission Date: 20050727
  Serious: No
  Sender: FDA-Public Use
  Company Number: None

PATIENT
  Sex: Male

DRUGS (3)
  1. COUMADIN [Suspect]
     Indication: ATRIAL FIBRILLATION
     Dates: start: 20050112
  2. COUMADIN [Suspect]
     Indication: MITRAL VALVE REPLACEMENT
     Dates: start: 20050112
  3. COUMADIN [Suspect]
     Indication: TRANSIENT ISCHAEMIC ATTACK
     Dates: start: 20050112

REACTIONS (1)
  - NO ADVERSE EFFECT [None]
